FAERS Safety Report 24865395 (Version 1)
Quarter: 2025Q1

REPORT INFORMATION
  Report Type: Spontaneous
  Country: US (occurrence: US)
  Receive Date: 20250121
  Receipt Date: 20250121
  Transmission Date: 20250409
  Serious: Yes (Other)
  Sender: Unknown Manufacturer
  Company Number: US-KOANAAP-SML-US-2025-00024

PATIENT
  Age: 77 Year
  Sex: Male

DRUGS (5)
  1. GEMCITABINE [Suspect]
     Active Substance: GEMCITABINE
     Indication: Ductal adenocarcinoma of pancreas
     Dates: start: 201808
  2. CAPECITABINE [Suspect]
     Active Substance: CAPECITABINE
     Indication: Adenocarcinoma metastatic
  3. CAPECITABINE [Suspect]
     Active Substance: CAPECITABINE
     Indication: Ductal adenocarcinoma of pancreas
  4. FLUOROURACIL [Suspect]
     Active Substance: FLUOROURACIL
     Indication: Ductal adenocarcinoma of pancreas
     Dates: start: 201904
  5. PACLITAXEL [Suspect]
     Active Substance: PACLITAXEL
     Indication: Ductal adenocarcinoma of pancreas
     Dates: start: 201808

REACTIONS (4)
  - Leukopenia [Unknown]
  - Cellulitis [Unknown]
  - Anaemia [Unknown]
  - Drug ineffective [Unknown]
